FAERS Safety Report 13505207 (Version 6)
Quarter: 2017Q4

REPORT INFORMATION
  Report Type: Report from Study
  Country: JP (occurrence: JP)
  Receive Date: 20170502
  Receipt Date: 20171222
  Transmission Date: 20180320
  Serious: Yes (Death, Life-Threatening, Hospitalization)
  Sender: FDA-Public Use
  Company Number: JP-B.I. PHARMACEUTICALS,INC./RIDGEFIELD-2017-NB-002464

PATIENT
  Age: 80 Year
  Sex: Male
  Weight: 70 kg

DRUGS (2)
  1. PRAZAXA [Suspect]
     Active Substance: DABIGATRAN ETEXILATE MESYLATE
     Indication: ATRIAL FIBRILLATION
     Route: 048
  2. BAYASPIRIN [Suspect]
     Active Substance: ASPIRIN
     Indication: PRODUCT USED FOR UNKNOWN INDICATION
     Route: 048
     Dates: end: 20170424

REACTIONS (2)
  - Cerebral haemorrhage [Fatal]
  - Hypertension [Unknown]

NARRATIVE: CASE EVENT DATE: 20170423
